FAERS Safety Report 7513490-2 (Version None)
Quarter: 2011Q2

REPORT INFORMATION
  Report Type: 
  Country: None (occurrence: None)
  Receive Date: 20110531
  Receipt Date: 20110516
  Transmission Date: 20111010
  Serious: Yes (Hospitalization)
  Sender: FDA-Public Use
  Company Number: US-BAYER-201030289NA

PATIENT
  Age: 38 Year
  Sex: Female
  Weight: 68.027 kg

DRUGS (9)
  1. ZOLOFT [Concomitant]
  2. YASMIN [Suspect]
     Indication: CONTRACEPTION
     Dosage: UNK UNK, QD
     Route: 048
     Dates: start: 20041101, end: 20081201
  3. YAZ [Suspect]
     Indication: CONTRACEPTION
  4. VALTREX [Concomitant]
     Indication: UNEVALUABLE EVENT
     Dosage: UNK
     Dates: start: 20000101, end: 20090101
  5. CLONAZEPAM [Concomitant]
     Dosage: UNK
     Dates: start: 20040519
  6. CLONAZEPAM [Concomitant]
     Dosage: UNK
     Dates: start: 20080818, end: 20081204
  7. PROTONIX [Concomitant]
  8. DROSPIRENONE AND ETHINYL ESTRADIOL [Suspect]
     Indication: CONTRACEPTION
     Dosage: UNK
     Dates: start: 20081201, end: 20091001
  9. SERTRALINE HYDROCHLORIDE [Concomitant]
     Dosage: UNK
     Dates: start: 20080814, end: 20081103

REACTIONS (5)
  - CHOLECYSTITIS [None]
  - ABDOMINAL PAIN UPPER [None]
  - NAUSEA [None]
  - VOMITING [None]
  - INCISION SITE COMPLICATION [None]
